FAERS Safety Report 9014038 (Version 3)
Quarter: 2014Q2

REPORT INFORMATION
  Report Type: Spontaneous
  Country: US (occurrence: US)
  Receive Date: 20130115
  Receipt Date: 20140305
  Transmission Date: 20141212
  Serious: Yes (Other)
  Sender: FDA-Public Use
  Company Number: US-ROCHE-1177861

PATIENT
  Sex: Male

DRUGS (1)
  1. AVASTIN [Suspect]
     Indication: MACULAR DEGENERATION
     Route: 050
     Dates: start: 2008

REACTIONS (20)
  - Eye discharge [Unknown]
  - Eye infection [Unknown]
  - Blindness [Unknown]
  - Eye inflammation [Unknown]
  - Nausea [Unknown]
  - Confusional state [Unknown]
  - Ocular discomfort [Unknown]
  - Thrombosis [Unknown]
  - Thrombocytopenia [Unknown]
  - Intermittent claudication [Unknown]
  - Eye haemorrhage [Unknown]
  - Fatigue [Unknown]
  - Gait disturbance [Unknown]
  - Impaired healing [Unknown]
  - Contusion [Unknown]
  - Lacrimation increased [Unknown]
  - Neurological symptom [Unknown]
  - Sleep disorder [Unknown]
  - Lacrimation increased [Not Recovered/Not Resolved]
  - Procedural complication [Recovered/Resolved]
